FAERS Safety Report 23823868 (Version 2)
Quarter: 2024Q2

REPORT INFORMATION
  Report Type: Spontaneous
  Country: GB (occurrence: GB)
  Receive Date: 20240507
  Receipt Date: 20240517
  Transmission Date: 20240716
  Serious: Yes (Other)
  Sender: FDA-Public Use
  Company Number: GB-TAKEDA-2024TUS040984

PATIENT
  Age: 40 Year
  Sex: Female

DRUGS (1)
  1. TAKHZYRO [Suspect]
     Active Substance: LANADELUMAB-FLYO
     Indication: Hereditary angioedema
     Dosage: 300 MILLIGRAM, Q2WEEKS
     Route: 058
     Dates: start: 20240110, end: 20240314

REACTIONS (7)
  - Bradycardia [Recovered/Resolved]
  - Lower respiratory tract infection [Recovered/Resolved]
  - Viral infection [Recovered/Resolved]
  - Presyncope [Unknown]
  - Nausea [Unknown]
  - Headache [Unknown]
  - Hypersensitivity [Recovered/Resolved]

NARRATIVE: CASE EVENT DATE: 20240117
